FAERS Safety Report 8131543-5 (Version None)
Quarter: 2012Q1

REPORT INFORMATION
  Report Type: 
  Country: None (occurrence: None)
  Receive Date: 20120213
  Receipt Date: 20120202
  Transmission Date: 20120608
  Serious: Yes (Hospitalization, Other)
  Sender: FDA-Public Use
  Company Number: CA-JNJFOC-20120201881

PATIENT
  Sex: Female

DRUGS (3)
  1. REMICADE [Suspect]
     Indication: CROHN'S DISEASE
     Route: 042
     Dates: start: 20120106
  2. REMICADE [Suspect]
     Route: 042
     Dates: start: 20080101
  3. IMURAN [Concomitant]
     Route: 048

REACTIONS (2)
  - MALNUTRITION [None]
  - SEPSIS [None]
